FAERS Safety Report 15295243 (Version 2)
Quarter: 2019Q2

REPORT INFORMATION
  Report Type: Spontaneous
  Country: US (occurrence: US)
  Receive Date: 20180820
  Receipt Date: 20190402
  Transmission Date: 20190711
  Serious: No
  Sender: FDA-Public Use
  Company Number: US-PFIZER INC-2018333906

PATIENT
  Age: 10 Year
  Sex: Male

DRUGS (1)
  1. GENOTROPIN [Suspect]
     Active Substance: SOMATROPIN
     Dosage: 1.1 MG, DAILY
     Dates: start: 20180806

REACTIONS (4)
  - Product dose omission [Unknown]
  - Injection site bruising [Recovering/Resolving]
  - Wrong technique in device usage process [Unknown]
  - Injection site deformation [Unknown]

NARRATIVE: CASE EVENT DATE: 2019
